FAERS Safety Report 25595628 (Version 1)
Quarter: 2025Q3

REPORT INFORMATION
  Report Type: Spontaneous
  Country: EU (occurrence: EU)
  Receive Date: 20250723
  Receipt Date: 20250723
  Transmission Date: 20251021
  Serious: Yes (Hospitalization, Other)
  Sender: AUROBINDO
  Company Number: EU-009507513-2298559

PATIENT
  Age: 70 Year
  Sex: Female
  Weight: 47.2 kg

DRUGS (5)
  1. CARBOPLATIN [Suspect]
     Active Substance: CARBOPLATIN
     Indication: Adenocarcinoma of the cervix
     Route: 065
     Dates: start: 20250113
  2. PACLITAXEL [Suspect]
     Active Substance: PACLITAXEL
     Indication: Adenocarcinoma of the cervix
     Route: 065
     Dates: start: 20250113
  3. KEYTRUDA [Suspect]
     Active Substance: PEMBROLIZUMAB
     Indication: Adenocarcinoma of the cervix
     Route: 065
     Dates: start: 20250224
  4. KEYTRUDA [Suspect]
     Active Substance: PEMBROLIZUMAB
     Route: 065
     Dates: start: 20250113, end: 20250224
  5. BEVACIZUMAB [Suspect]
     Active Substance: BEVACIZUMAB
     Indication: Adenocarcinoma of the cervix
     Route: 065
     Dates: start: 20250113, end: 20250113

REACTIONS (25)
  - Myocarditis [Unknown]
  - Monoparesis [Unknown]
  - Hypoaesthesia [Unknown]
  - Paraneoplastic syndrome [Unknown]
  - Pericardial effusion [Unknown]
  - General physical health deterioration [Unknown]
  - Dysarthria [Unknown]
  - Myositis [Unknown]
  - Dysphagia [Unknown]
  - Paralysis [Unknown]
  - Dysphonia [Unknown]
  - Weight decreased [Unknown]
  - Pollakiuria [Unknown]
  - Dizziness [Unknown]
  - Alopecia [Unknown]
  - Thirst [Unknown]
  - Constipation [Unknown]
  - Visual impairment [Unknown]
  - Arthralgia [Unknown]
  - Fistula [Unknown]
  - Hyperhidrosis [Unknown]
  - Dry mouth [Unknown]
  - Wound [Unknown]
  - Skin exfoliation [Unknown]
  - Cough [Unknown]

NARRATIVE: CASE EVENT DATE: 20250101
